FAERS Safety Report 22353667 (Version 2)
Quarter: 2023Q2

REPORT INFORMATION
  Report Type: Report from Study
  Country: CO (occurrence: CO)
  Receive Date: 20230523
  Receipt Date: 20230526
  Transmission Date: 20230722
  Serious: Yes (Death, Hospitalization, Other)
  Sender: FDA-Public Use
  Company Number: CO-TAKEDA-2023TUS050512

PATIENT
  Sex: Female

DRUGS (1)
  1. VEDOLIZUMAB [Suspect]
     Active Substance: VEDOLIZUMAB
     Indication: Crohn^s disease
     Dosage: 300 MILLIGRAM
     Route: 042
     Dates: start: 20230323

REACTIONS (4)
  - General physical health deterioration [Fatal]
  - Pain [Not Recovered/Not Resolved]
  - Discouragement [Not Recovered/Not Resolved]
  - Platelet count decreased [Not Recovered/Not Resolved]
